FAERS Safety Report 21410057 (Version 2)
Quarter: 2023Q1

REPORT INFORMATION
  Report Type: Report from Study
  Country: US (occurrence: None)
  Receive Date: 20221005
  Receipt Date: 20230220
  Transmission Date: 20230417
  Serious: Yes (Other)
  Sender: FDA-Public Use
  Company Number: US-Merck Healthcare KGaA-9346531

PATIENT
  Age: 31 Year
  Sex: Female
  Weight: 67 kg

DRUGS (1)
  1. REBIF [Suspect]
     Active Substance: INTERFERON BETA-1A
     Indication: Multiple sclerosis
     Route: 058
     Dates: start: 20150629

REACTIONS (4)
  - Meniere^s disease [Not Recovered/Not Resolved]
  - Urinary tract infection [Unknown]
  - Multiple sclerosis relapse [Recovered/Resolved]
  - Sciatica [Recovered/Resolved]

NARRATIVE: CASE EVENT DATE: 20220906
